FAERS Safety Report 5168550-0 (Version None)
Quarter: 2006Q4

REPORT INFORMATION
  Report Type: 
  Country: None (occurrence: None)
  Receive Date: 20061208
  Receipt Date: 20061128
  Transmission Date: 20070319
  Serious: Yes (Other)
  Sender: FDA-Public Use
  Company Number: US-ABBOTT-06P-163-0351666-00

PATIENT
  Age: 44 Year
  Sex: Female

DRUGS (2)
  1. TRICOR [Suspect]
     Indication: HIGH DENSITY LIPOPROTEIN INCREASED
     Route: 048
  2. BROMOCRIPTINE MESYLATE [Concomitant]
     Indication: BLOOD PROLACTIN ABNORMAL
     Route: 048
     Dates: start: 20040101

REACTIONS (5)
  - FEELING ABNORMAL [None]
  - HIGH DENSITY LIPOPROTEIN INCREASED [None]
  - LETHARGY [None]
  - METABOLIC ACIDOSIS [None]
  - SOMNOLENCE [None]
